FAERS Safety Report 5616567-1 (Version None)
Quarter: 2008Q1

REPORT INFORMATION
  Report Type: 
  Country: None (occurrence: None)
  Receive Date: 20080207
  Receipt Date: 20070726
  Transmission Date: 20080703
  Serious: No
  Sender: FDA-Public Use
  Company Number: A0666083A

PATIENT
  Age: 59 Year
  Sex: Female

DRUGS (3)
  1. PAXIL CR [Suspect]
     Dosage: 37.5MG ALTERNATE DAYS
     Route: 048
     Dates: start: 19990101
  2. VITAMIN AND MINERAL PRENATAL SUPPLEMENT W/ FOLIC ACID CAP [Concomitant]
  3. IRON SUPPLEMENT [Concomitant]

REACTIONS (2)
  - PAIN [None]
  - PARAESTHESIA [None]
